FAERS Safety Report 22325250 (Version 1)
Quarter: 2023Q2

REPORT INFORMATION
  Report Type: Spontaneous
  Country: CA (occurrence: CA)
  Receive Date: 20230516
  Receipt Date: 20230516
  Transmission Date: 20230721
  Serious: Yes (Life-Threatening, Hospitalization, Other)
  Sender: FDA-Public Use
  Company Number: CA-ORGANON-O2305CAN001223

PATIENT
  Sex: Male

DRUGS (22)
  1. FOSAMAX [Suspect]
     Active Substance: ALENDRONATE SODIUM
     Indication: Product used for unknown indication
     Dosage: 1 DOSAGE FORM, QD (1 EVERY 1 DAYS)
     Route: 048
  2. SINGULAIR [Suspect]
     Active Substance: MONTELUKAST SODIUM
     Indication: Product used for unknown indication
     Dosage: 1 DOSAGE FORM, QD 1 EVERY 1DAYS
     Route: 065
  3. ZENHALE [Suspect]
     Active Substance: FORMOTEROL FUMARATE\MOMETASONE FUROATE
     Indication: Product used for unknown indication
     Dosage: UNK (DOSAGE FORM: AEROSOL, METERED DOSE)
     Route: 065
  4. PROSCAR [Suspect]
     Active Substance: FINASTERIDE
     Indication: Product used for unknown indication
     Dosage: 5 MILLIGRAM, QD (1 EVERY 1 DAYS)
     Route: 048
  5. ASPIRIN [Suspect]
     Active Substance: ASPIRIN
     Indication: Product used for unknown indication
     Dosage: 1 DOSAGE FORM, QD (1 EVERY 1 DAYS) DOSAGE FORM NOT SPECIFIED
     Route: 065
  6. ASPIRIN [Suspect]
     Active Substance: ASPIRIN
     Dosage: UNK 1 EVERY 1 DAYS
     Route: 048
  7. ALLOPURINOL [Suspect]
     Active Substance: ALLOPURINOL
     Indication: Product used for unknown indication
     Dosage: 200 MILLIGRAM, QD (1 EVERY 1 DAYS)
     Route: 048
  8. APIXABAN [Suspect]
     Active Substance: APIXABAN
     Indication: Product used for unknown indication
     Dosage: 5 MILLIGRAM, Q12H (1 EVERY 0.5 DAYS)
     Route: 048
  9. BISOPROLOL [Suspect]
     Active Substance: BISOPROLOL
     Indication: Product used for unknown indication
     Dosage: 2.5 MILLIGRAM, QD (1EVERY 1 DAYS)
     Route: 048
  10. BREO ELLIPTA [Suspect]
     Active Substance: FLUTICASONE FUROATE\VILANTEROL TRIFENATATE
     Indication: Product used for unknown indication
     Dosage: 1 DOSAGE FORM, QD (1 EVERY 1 DAYS) DOSAGE FORM INHALATION
     Route: 065
  11. CHOLECALCIFEROL [Suspect]
     Active Substance: CHOLECALCIFEROL
     Indication: Product used for unknown indication
     Dosage: 1 DOSAGE FORM, QD (1 EVERY 1DAYS) DOSAGE FORM NOT SPECIFIED
     Route: 048
  12. FUROSEMIDE [Suspect]
     Active Substance: FUROSEMIDE
     Indication: Product used for unknown indication
     Dosage: 80 MILLIGRAM, QD (1 EVERY 1 DAYS) DOSAGE FORM NOT SPECIFIED
     Route: 048
  13. GABAPENTIN [Suspect]
     Active Substance: GABAPENTIN
     Indication: Product used for unknown indication
     Dosage: 300 MILLIGRAM, QD (1 EVERY 1 DAYS) DOSAGE FORM NOT SPECIFIED
     Route: 048
  14. OLMESARTAN MEDOXOMIL [Suspect]
     Active Substance: OLMESARTAN MEDOXOMIL
     Indication: Product used for unknown indication
     Dosage: 40 MILLIGRAM, QD (1 EVERY 1 DAYS)
     Route: 048
  15. OLMESARTAN MEDOXOMIL [Suspect]
     Active Substance: OLMESARTAN MEDOXOMIL
     Dosage: 40 MILLIGRAM, QD (1 EVERY 1 DAYS) REPORTED AS OLMESARTAN
     Route: 048
  16. PANTOPRAZOLE [Suspect]
     Active Substance: PANTOPRAZOLE
     Indication: Product used for unknown indication
     Dosage: 40 MILLIGRAM, QD (1 EVERY 1 DAYS) DOSAGE FORM NOT SPECIFIED
     Route: 048
  17. PREDNISONE [Suspect]
     Active Substance: PREDNISONE
     Indication: Product used for unknown indication
     Dosage: 15 MILLIGRAM, QD(1 EVERY 1 DAYS) DOSAGE FORM NOT SPECIFIED
     Route: 065
  18. ALBUTEROL [Suspect]
     Active Substance: ALBUTEROL
     Indication: Product used for unknown indication
     Dosage: 1 DOSAGE FORM, QD (1 EVERY 1 DAYS) DOSAGE FORM NOT SPECIFIED
     Route: 065
  19. SPIRIVA [Suspect]
     Active Substance: TIOTROPIUM BROMIDE MONOHYDRATE
     Indication: Product used for unknown indication
     Dosage: 1 DOSAGE FORM, QD (1 EVERY 1 DAYS) DOSAGE FORM NOT SPECIFIED
     Route: 065
  20. TAMSULOSIN HYDROCHLORIDE [Suspect]
     Active Substance: TAMSULOSIN HYDROCHLORIDE
     Indication: Product used for unknown indication
     Dosage: 0.4 MILLIGRAM, QD (1 EVERY 1 DAYS)
     Route: 048
  21. THEOPHYLLINE [Suspect]
     Active Substance: THEOPHYLLINE
     Indication: Product used for unknown indication
     Dosage: 100 MILLIGRAM, Q12H  (1  EVERY 5DAYS) DOSAGE FORM  NOT SPECIFIED
     Route: 048
  22. UMECLIDINIUM BROMIDE [Suspect]
     Active Substance: UMECLIDINIUM BROMIDE
     Indication: Product used for unknown indication
     Dosage: 1 DOSAGE FORM, QD(1 EVERY 1 DAYS)
     Route: 065

REACTIONS (36)
  - Adverse event [Unknown]
  - Anxiety [Unknown]
  - Aortic valve stenosis [Unknown]
  - Asthma [Unknown]
  - Atrial fibrillation [Unknown]
  - Benign prostatic hyperplasia [Unknown]
  - Bronchial secretion retention [Unknown]
  - Bronchial wall thickening [Unknown]
  - Bronchiectasis [Unknown]
  - Cardiac failure congestive [Unknown]
  - Chest X-ray abnormal [Unknown]
  - Cough [Unknown]
  - Depression [Unknown]
  - Diastolic dysfunction [Unknown]
  - Dizziness [Unknown]
  - Dyspnoea [Unknown]
  - Fatigue [Unknown]
  - Full blood count abnormal [Unknown]
  - Gastrooesophageal reflux disease [Unknown]
  - Gout [Unknown]
  - Hospitalisation [Unknown]
  - Hypertension [Unknown]
  - Hypoacusis [Unknown]
  - Intervertebral disc degeneration [Unknown]
  - Loss of personal independence in daily activities [Unknown]
  - Obstruction [Unknown]
  - Obstructive airways disorder [Unknown]
  - Osteoporosis [Unknown]
  - Pain in extremity [Unknown]
  - Productive cough [Unknown]
  - Pulmonary function test abnormal [Unknown]
  - Right atrial hypertrophy [Unknown]
  - Right ventricular hypertrophy [Unknown]
  - Sleep apnoea syndrome [Unknown]
  - Therapeutic product effect incomplete [Unknown]
  - Wheezing [Unknown]
